FAERS Safety Report 4547950-3 (Version None)
Quarter: 2005Q1

REPORT INFORMATION
  Report Type: 
  Country: None (occurrence: None)
  Receive Date: 20050110
  Receipt Date: 20050104
  Transmission Date: 20050727
  Serious: Yes (Hospitalization)
  Sender: FDA-Public Use
  Company Number: US-JNJFOC-20050100857

PATIENT
  Age: 48 Year
  Sex: Female

DRUGS (10)
  1. DURAGESIC [Suspect]
     Route: 062
  2. NEURONTIN [Concomitant]
  3. BENTYL [Concomitant]
  4. PANCREASE [Concomitant]
  5. EFFEXOR [Concomitant]
  6. BUSPAR [Concomitant]
  7. REGLAN [Concomitant]
  8. ALBUTEROL [Concomitant]
     Route: 055
  9. ADVAIR DISKUS 100/50 [Concomitant]
  10. ADVAIR DISKUS 100/50 [Concomitant]

REACTIONS (5)
  - GALLBLADDER DISORDER [None]
  - HEPATIC TRAUMA [None]
  - PANCREATITIS [None]
  - PROCEDURAL COMPLICATION [None]
  - WEIGHT DECREASED [None]
